FAERS Safety Report 11910985 (Version 1)
Quarter: 2016Q1

REPORT INFORMATION
  Report Type: Spontaneous
  Country: US (occurrence: None)
  Receive Date: 20160111
  Receipt Date: 20160111
  Transmission Date: 20160526
  Serious: Yes (Disabling)
  Sender: FDA-Public Use
  Company Number: None

PATIENT
  Age: 64 Year
  Sex: Female
  Weight: 54.43 kg

DRUGS (4)
  1. COPAXONE [Concomitant]
     Active Substance: GLATIRAMER ACETATE
  2. CVS NIGHTTIME COLD/FLU RELIEF [Suspect]
     Active Substance: ACETAMINOPHEN\DEXTROMETHORPHAN HYDROBROMIDE\DOXYLAMINE SUCCINATE
     Indication: RHINORRHOEA
     Dosage: THEIR RECOMMENDED DOSE AT BEDTIME TAKEN BY MOUTH
     Route: 048
     Dates: start: 20160107
  3. VITAMIN D [Concomitant]
     Active Substance: CHOLECALCIFEROL
  4. CVS NIGHTTIME COLD/FLU RELIEF [Suspect]
     Active Substance: ACETAMINOPHEN\DEXTROMETHORPHAN HYDROBROMIDE\DOXYLAMINE SUCCINATE
     Indication: NASOPHARYNGITIS
     Dosage: THEIR RECOMMENDED DOSE AT BEDTIME TAKEN BY MOUTH
     Route: 048
     Dates: start: 20160107

REACTIONS (1)
  - Gait disturbance [None]

NARRATIVE: CASE EVENT DATE: 20160107
